FAERS Safety Report 23290572 (Version 1)
Quarter: 2023Q4

REPORT INFORMATION
  Report Type: Spontaneous
  Country: US (occurrence: US)
  Receive Date: 20231213
  Receipt Date: 20231213
  Transmission Date: 20240109
  Serious: No
  Sender: FDA-Public Use
  Company Number: US-PADAGIS-2023PAD01702

PATIENT

DRUGS (2)
  1. NYSTATIN\TRIAMCINOLONE ACETONIDE [Suspect]
     Active Substance: NYSTATIN\TRIAMCINOLONE ACETONIDE
     Indication: Tinea cruris
     Dosage: UNK, (A WEEK AGO)
     Route: 065
     Dates: start: 202311
  2. NYSTATIN\TRIAMCINOLONE ACETONIDE [Suspect]
     Active Substance: NYSTATIN\TRIAMCINOLONE ACETONIDE
     Dosage: UNK, BID
     Route: 065

REACTIONS (4)
  - Condition aggravated [Unknown]
  - Application site irritation [Unknown]
  - Application site pain [Unknown]
  - Drug ineffective for unapproved indication [Unknown]

NARRATIVE: CASE EVENT DATE: 20231101
